FAERS Safety Report 8531695-9 (Version None)
Quarter: 2012Q3

REPORT INFORMATION
  Report Type: 
  Country: None (occurrence: None)
  Receive Date: 20120711
  Receipt Date: 20120703
  Transmission Date: 20120928
  Serious: Yes (Hospitalization)
  Sender: FDA-Public Use
  Company Number: 2012MA008316

PATIENT
  Age: 93 Year
  Sex: Male

DRUGS (5)
  1. MAGNYL [Concomitant]
  2. LOSARTAN POTASSIUM [Suspect]
     Indication: HYPERTENSION
     Dosage: 50 MG; QD; PO
     Route: 048
     Dates: end: 20120608
  3. JANUVIA [Suspect]
     Indication: TYPE 2 DIABETES MELLITUS
     Dosage: 100 MG; QD; PO
     Route: 048
     Dates: end: 20120608
  4. CARVEDILOL [Concomitant]
  5. SIMVASTATIN [Concomitant]

REACTIONS (4)
  - INFECTION [None]
  - RENAL IMPAIRMENT [None]
  - RESPIRATORY ACIDOSIS [None]
  - METABOLIC ACIDOSIS [None]
